FAERS Safety Report 18484507 (Version 1)
Quarter: 2020Q4

REPORT INFORMATION
  Report Type: Spontaneous
  Country: CH (occurrence: FR)
  Receive Date: 20201110
  Receipt Date: 20201110
  Transmission Date: 20210114
  Serious: Yes (Death, Life-Threatening, Other)
  Sender: FDA-Public Use
  Company Number: CH-KYOWAKIRIN-2020BKK017819

PATIENT

DRUGS (7)
  1. CISPLATIN. [Suspect]
     Active Substance: CISPLATIN
     Indication: SQUAMOUS CELL CARCINOMA OF HEAD AND NECK
     Dosage: 100 MG/M2 ONCE IN EVERY CYCLE FOR 3 CYCLES (ON DAYS 2, 2 AND 44)
     Route: 042
  2. DEBIO 1143 [Suspect]
     Active Substance: XEVINAPANT
     Indication: SQUAMOUS CELL CARCINOMA OF HEAD AND NECK
     Dosage: 200 MG, QD, ON DAYS 1?14 OF 21-DAY TREATMENT CYCLES, FOR THREE CYCLES
     Route: 048
  3. APREPITANT. [Suspect]
     Active Substance: APREPITANT
     Indication: PROPHYLAXIS OF NAUSEA AND VOMITING
     Dosage: UNK, BEFORE AND AFTER CISPLATIN
     Route: 065
  4. GRANISETRON [Suspect]
     Active Substance: GRANISETRON
     Indication: PROPHYLAXIS OF NAUSEA AND VOMITING
     Dosage: UNK, BEFORE AND AFTER CISPLATIN
     Route: 065
  5. DEXAMETHASONE. [Suspect]
     Active Substance: DEXAMETHASONE
     Indication: PROPHYLAXIS OF NAUSEA AND VOMITING
     Dosage: UNK, BEFORE AND AFTER CISPLATIN
     Route: 065
  6. DEXAMETHASONE. [Suspect]
     Active Substance: DEXAMETHASONE
     Indication: RENAL DISORDER PROPHYLAXIS
  7. APREPITANT. [Suspect]
     Active Substance: APREPITANT
     Indication: RENAL DISORDER PROPHYLAXIS

REACTIONS (96)
  - Hypomagnesaemia [Unknown]
  - Hyperglycaemia [Unknown]
  - Hyperamylasaemia [Unknown]
  - Thrombocytopenia [Unknown]
  - Asthenia [Unknown]
  - Alanine aminotransferase increased [Unknown]
  - Gamma-glutamyltransferase increased [Unknown]
  - Confusional state [Unknown]
  - Transitional cell carcinoma [Unknown]
  - Central venous catheterisation [Unknown]
  - Alopecia [Unknown]
  - Tinnitus [Unknown]
  - Dysgeusia [Unknown]
  - Asphyxia [Fatal]
  - Hypokalaemia [Unknown]
  - Febrile neutropenia [Unknown]
  - Faecaloma [Unknown]
  - Odynophagia [Unknown]
  - Fungal infection [Unknown]
  - Gastrointestinal haemorrhage [Unknown]
  - Staphylococcal infection [Unknown]
  - Tongue haemorrhage [Unknown]
  - Headache [Unknown]
  - Dysphonia [Unknown]
  - Polyuria [Unknown]
  - Osteonecrosis [Unknown]
  - Hypophosphataemia [Unknown]
  - Acute kidney injury [Unknown]
  - Hypoalbuminaemia [Unknown]
  - Hyperlipasaemia [Unknown]
  - Hyponatraemia [Unknown]
  - Lung disorder [Unknown]
  - Febrile bone marrow aplasia [Unknown]
  - Hepatobiliary disease [Unknown]
  - Procedural pain [Unknown]
  - Anxiety [Unknown]
  - Oral candidiasis [Unknown]
  - Leukopenia [Unknown]
  - Malnutrition [Unknown]
  - Lymphopenia [Unknown]
  - Sepsis [Unknown]
  - Radiation skin injury [Unknown]
  - Fatigue [Unknown]
  - Trismus [Unknown]
  - Dyspnoea [Unknown]
  - Device related infection [Unknown]
  - Dehydration [Unknown]
  - Cerebrovascular accident [Unknown]
  - Mouth haemorrhage [Unknown]
  - Cough [Unknown]
  - Blood urea increased [Unknown]
  - Dysphagia [Unknown]
  - Decreased appetite [Unknown]
  - Renal failure [Unknown]
  - Oesophagitis [Unknown]
  - Aplasia [Unknown]
  - Hypoxia [Unknown]
  - Nutritional condition abnormal [Unknown]
  - Rash [Unknown]
  - Ulcerative keratitis [Unknown]
  - Constipation [Unknown]
  - Insomnia [Unknown]
  - Multiple organ dysfunction syndrome [Fatal]
  - Hyperuricaemia [Unknown]
  - Ischaemic stroke [Unknown]
  - Oral pain [Unknown]
  - Hypertension [Unknown]
  - Chronic kidney disease [Unknown]
  - Dermatitis acneiform [Unknown]
  - Salivary hypersecretion [Unknown]
  - Neutropenia [Unknown]
  - Hepatic failure [Unknown]
  - Mucosal inflammation [Unknown]
  - Anaemia [Unknown]
  - Dermatitis [Unknown]
  - Vomiting [Unknown]
  - Loss of consciousness [Unknown]
  - Hypoprothrombinaemia [Unknown]
  - Nausea [Unknown]
  - Weight decreased [Unknown]
  - Pyrexia [Unknown]
  - Stomatitis [Unknown]
  - Neck pain [Unknown]
  - Diarrhoea [Unknown]
  - Blood creatinine increased [Unknown]
  - Oropharyngeal pain [Unknown]
  - Aspartate aminotransferase increased [Unknown]
  - Hypocalcaemia [Unknown]
  - Diabetic ketoacidosis [Unknown]
  - Pneumonia [Unknown]
  - Pyelonephritis [Unknown]
  - Hypotension [Unknown]
  - N-terminal prohormone brain natriuretic peptide increased [Unknown]
  - Urine output decreased [Unknown]
  - Dry mouth [Unknown]
  - Parenteral nutrition [Unknown]
